FAERS Safety Report 8267564-1 (Version None)
Quarter: 2012Q2

REPORT INFORMATION
  Report Type: 
  Country: None (occurrence: None)
  Receive Date: 20120404
  Receipt Date: 20120328
  Transmission Date: 20120825
  Serious: Yes (Death, Other)
  Sender: FDA-Public Use
  Company Number: ADR-2012-00628

PATIENT
  Sex: Male
  Weight: 70 kg

DRUGS (16)
  1. KALIMATE [Concomitant]
  2. ARGAMATE JELLY 25 [Concomitant]
  3. REMITCH CAPSULE [Concomitant]
  4. ANPLAG [Concomitant]
  5. PENLES [Concomitant]
  6. RABEPRAZOLE SODIUM [Concomitant]
  7. DIOVAN [Concomitant]
  8. TOKISHIG YAKUKAGOSHUYUSHOKYOTO [Concomitant]
  9. ARICEPT OD [Concomitant]
  10. BISOPROLOL FUMARATE [Concomitant]
  11. CALFINA [Concomitant]
  12. FOSRENOL [Concomitant]
  13. WARFARIN SODIUM [Concomitant]
  14. RIVOTRIL FINE GRANULE [Concomitant]
  15. BACLOFEN [Suspect]
     Dosage: 50 MCG/DAY
  16. EPADEK S 900 [Concomitant]

REACTIONS (7)
  - FALL [None]
  - HEAD INJURY [None]
  - HAEMODIALYSIS [None]
  - CONTUSION [None]
  - SUBDURAL HAEMATOMA [None]
  - CEREBRAL HAEMATOMA [None]
  - BRAIN DEATH [None]
